FAERS Safety Report 13569225 (Version 2)
Quarter: 2017Q3

REPORT INFORMATION
  Report Type: Spontaneous
  Country: US (occurrence: US)
  Receive Date: 20170522
  Receipt Date: 20170726
  Transmission Date: 20171127
  Serious: Yes (Other)
  Sender: FDA-Public Use
  Company Number: US-BAYER-2017-091156

PATIENT
  Age: 91 Year
  Sex: Male
  Weight: 64 kg

DRUGS (2)
  1. ONE A DAY MEN^S HEALTH [Suspect]
     Active Substance: VITAMINS
     Indication: NUTRITIONAL SUPPLEMENTATION
     Dosage: 1 DF, UNK
     Route: 048
  2. BAYER ASPIRIN [Suspect]
     Active Substance: ASPIRIN
     Indication: MYOCARDIAL INFARCTION
     Dosage: 2 DF, UNK
     Route: 048

REACTIONS (3)
  - Product use complaint [None]
  - Choking [Unknown]
  - Drug effective for unapproved indication [None]
